FAERS Safety Report 14523513 (Version 2)
Quarter: 2018Q2

REPORT INFORMATION
  Report Type: Report from Study
  Country: None (occurrence: US)
  Receive Date: 20180212
  Receipt Date: 20180502
  Transmission Date: 20180711
  Serious: Yes (Other)
  Sender: FDA-Public Use
  Company Number: US-ABBVIE-18S-163-2252404-00

PATIENT
  Age: 68 Year
  Sex: Female

DRUGS (1)
  1. CREON [Suspect]
     Active Substance: PANCRELIPASE AMYLASE\PANCRELIPASE LIPASE\PANCRELIPASE PROTEASE
     Indication: PRODUCT USED FOR UNKNOWN INDICATION
     Dosage: 1 CAPSULE DAILY WITH BREAKFAST LUNCH AND DINNER
     Route: 048
     Dates: start: 2013

REACTIONS (5)
  - Facial bones fracture [Unknown]
  - Tendon rupture [Unknown]
  - Rotator cuff repair [Unknown]
  - Cataract [Unknown]
  - Eczema [Unknown]

NARRATIVE: CASE EVENT DATE: 201608
